FAERS Safety Report 7730779-2 (Version None)
Quarter: 2011Q3

REPORT INFORMATION
  Report Type: 
  Country: None (occurrence: None)
  Receive Date: 20110906
  Receipt Date: 20110825
  Transmission Date: 20111222
  Serious: Yes (Hospitalization, Other)
  Sender: FDA-Public Use
  Company Number: FR-ELI_LILLY_AND_COMPANY-FR201106001504

PATIENT
  Sex: Male
  Weight: 60 kg

DRUGS (9)
  1. ALIMTA [Suspect]
     Dosage: 400 MG/M2, UNK
     Dates: start: 20100909
  2. BISOPROLOL FUMARATE [Concomitant]
     Dosage: 2.5 MG, DAILY
  3. TRILEPTAL [Concomitant]
     Dosage: 2*300MG DAILY
  4. PREDNISOLONE [Concomitant]
     Dosage: 20MG
  5. CLONAZEPAM [Concomitant]
     Dosage: 5 DROPS
  6. NEXIUM [Concomitant]
     Dosage: 40 MG, QD
  7. RAMIPRIL [Concomitant]
     Dosage: 2.5 MG, QD
  8. FOLIC ACID [Concomitant]
  9. NEULASTA [Concomitant]
     Dosage: 6 MG, UNK
     Route: 042
     Dates: start: 20100910

REACTIONS (4)
  - NEUTROPENIA [None]
  - TRANSAMINASES INCREASED [None]
  - LEUKOCYTOCLASTIC VASCULITIS [None]
  - THROMBOCYTOPENIA [None]
